FAERS Safety Report 14118912 (Version 1)
Quarter: 2017Q4

REPORT INFORMATION
  Report Type: Spontaneous
  Country: US (occurrence: US)
  Receive Date: 20171024
  Receipt Date: 20171024
  Transmission Date: 20180321
  Serious: No
  Sender: FDA-Public Use
  Company Number: US-ASTRAZENECA-2017SF07637

PATIENT
  Sex: Male

DRUGS (1)
  1. CHILDRENS RHINOCORT ALLERGY [Suspect]
     Active Substance: BUDESONIDE
     Indication: RHINORRHOEA
     Route: 045

REACTIONS (1)
  - Pain [Recovered/Resolved]
